FAERS Safety Report 21023139 (Version 1)
Quarter: 2022Q2

REPORT INFORMATION
  Report Type: Spontaneous
  Country: PL (occurrence: PL)
  Receive Date: 20220629
  Receipt Date: 20220629
  Transmission Date: 20220721
  Serious: Yes (Death, Other)
  Sender: FDA-Public Use
  Company Number: PL-GILEAD-2022-0587282

PATIENT
  Age: 73 Year
  Sex: Female

DRUGS (2)
  1. VEKLURY [Suspect]
     Active Substance: REMDESIVIR
     Indication: COVID-19
     Dosage: UNK
     Route: 042
  2. OXYGEN [Concomitant]
     Active Substance: OXYGEN
     Dosage: PASSIVE OXYGEN  THERAPY, MECHANICAL  VENTILATION

REACTIONS (1)
  - Death [Fatal]
